FAERS Safety Report 20347023 (Version 1)
Quarter: 2022Q1

REPORT INFORMATION
  Report Type: Spontaneous
  Country: US (occurrence: None)
  Receive Date: 20220118
  Receipt Date: 20220118
  Transmission Date: 20220423
  Serious: Yes (Hospitalization)
  Sender: FDA-Public Use
  Company Number: None

PATIENT
  Age: 18 Year
  Sex: Male

DRUGS (1)
  1. HUMIRA [Suspect]
     Active Substance: ADALIMUMAB
     Indication: Crohn^s disease
     Dosage: 40 MG ONCE WEEKLY SUBCUTANEOUS?
     Route: 058
     Dates: start: 20211120

REACTIONS (3)
  - Crohn^s disease [None]
  - Insurance issue [None]
  - Therapy change [None]

NARRATIVE: CASE EVENT DATE: 20211120
